FAERS Safety Report 4697670-X (Version None)
Quarter: 2005Q2

REPORT INFORMATION
  Report Type: 
  Country: None (occurrence: None)
  Receive Date: 20050622
  Receipt Date: 20040210
  Transmission Date: 20051028
  Serious: Yes (Other)
  Sender: FDA-Public Use
  Company Number: US97055050A

PATIENT
  Age: 41 Year
  Sex: Female
  Weight: 51 kg

DRUGS (9)
  1. INSULIN [Suspect]
     Indication: DIABETES MELLITUS
     Dates: start: 19440101, end: 20010101
  2. INSULIN [Suspect]
     Indication: DIABETES MELLITUS
     Dates: start: 19440101, end: 20010101
  3. HUMULIN N [Suspect]
     Indication: DIABETES MELLITUS
     Dosage: 16 U
     Dates: start: 19930101
  4. HUMULIN R [Suspect]
     Indication: DIABETES MELLITUS
  5. HUMALOG [Suspect]
     Indication: DIABETES MELLITUS INSULIN-DEPENDENT
     Dates: start: 20010101
  6. MAVIK [Concomitant]
  7. FOSAMAX [Concomitant]
  8. INSULIN GLARGINE [Concomitant]
  9. GLUCAGON [Concomitant]

REACTIONS (14)
  - ADVERSE DRUG REACTION [None]
  - ASTHENIA [None]
  - BLOOD GLUCOSE DECREASED [None]
  - BLOOD GLUCOSE INCREASED [None]
  - CATARACT [None]
  - DIZZINESS [None]
  - EYE DISORDER [None]
  - HYPOAESTHESIA [None]
  - HYPOGLYCAEMIA UNAWARENESS [None]
  - LOSS OF CONSCIOUSNESS [None]
  - MEMORY IMPAIRMENT [None]
  - RETINAL DETACHMENT [None]
  - SCAR [None]
  - VISUAL ACUITY REDUCED [None]
